FAERS Safety Report 9136743 (Version 1)
Quarter: 2013Q1

REPORT INFORMATION
  Report Type: Spontaneous
  Country: US (occurrence: US)
  Receive Date: 20130304
  Receipt Date: 20130304
  Transmission Date: 20140127
  Serious: No
  Sender: FDA-Public Use
  Company Number: US-ABBOTT-12P-163-0937199-00

PATIENT
  Sex: Male
  Weight: 69.01 kg

DRUGS (6)
  1. ANDROGEL 1% [Suspect]
     Indication: BLOOD TESTOSTERONE DECREASED
     Route: 061
     Dates: start: 200812, end: 201109
  2. ANDROGEL 1.62% [Suspect]
     Indication: BLOOD TESTOSTERONE DECREASED
     Route: 061
     Dates: start: 201109
  3. SYNTHROID [Concomitant]
     Indication: HYPOTHYROIDISM
  4. BENICAR [Concomitant]
     Indication: HYPERTENSION
  5. VANCOMYCIN [Concomitant]
     Indication: CLOSTRIDIAL INFECTION
  6. XANAX [Concomitant]
     Indication: BLADDER DISORDER

REACTIONS (1)
  - Blood testosterone decreased [Not Recovered/Not Resolved]
